FAERS Safety Report 7487828-9 (Version None)
Quarter: 2011Q2

REPORT INFORMATION
  Report Type: 
  Country: None (occurrence: None)
  Receive Date: 20110511
  Receipt Date: 20110506
  Transmission Date: 20111010
  Serious: Yes (Death)
  Sender: FDA-Public Use
  Company Number: GRT 2011-11772

PATIENT
  Sex: Male
  Weight: 84 kg

DRUGS (10)
  1. RAMIPRIL [Concomitant]
  2. LAROXYL (AMIRIPTYLINE HYDROCHLORIDE) [Concomitant]
  3. ATORVASTATIN CALCIUM [Concomitant]
  4. ACETYLSALICYLIC ACID SRT [Concomitant]
  5. CARVEDILOL [Concomitant]
  6. LIDODERM [Suspect]
     Dosage: 2 PATCHES, 2/DAY
     Dates: start: 20100126, end: 20110317
  7. LYRICA [Concomitant]
  8. ACYCOLOVIR [Concomitant]
  9. GABAPENTIN [Concomitant]
  10. NEURABEN (CYANOCOBALAMIN, PERIDOXINE HYDROCHLORIDE, BENMATIAMINE) [Concomitant]

REACTIONS (2)
  - OVERDOSE [None]
  - VENTRICULAR FIBRILLATION [None]
